FAERS Safety Report 8563793-8 (Version None)
Quarter: 2012Q3

REPORT INFORMATION
  Report Type: 
  Country: None (occurrence: None)
  Receive Date: 20120803
  Receipt Date: 20120725
  Transmission Date: 20120928
  Serious: Yes (Hospitalization)
  Sender: FDA-Public Use
  Company Number: US-009507513-1207USA011577

PATIENT

DRUGS (3)
  1. VICTRELIS [Suspect]
     Dosage: UNK
  2. SARAFEM [Concomitant]
  3. PEG-INTRON [Suspect]
     Dosage: UNK

REACTIONS (4)
  - HYPERHIDROSIS [None]
  - AMNESIA [None]
  - DISORIENTATION [None]
  - CATATONIA [None]
